FAERS Safety Report 21343716 (Version 1)
Quarter: 2022Q3

REPORT INFORMATION
  Report Type: Spontaneous
  Country: GB (occurrence: GB)
  Receive Date: 20220916
  Receipt Date: 20220916
  Transmission Date: 20221027
  Serious: Yes (Life-Threatening, Disabling, Other)
  Sender: FDA-Public Use
  Company Number: GB-MHRA-MED-202209071126060250-RKYPC

PATIENT
  Age: 92 Year
  Sex: Male

DRUGS (1)
  1. HALOPERIDOL [Suspect]
     Active Substance: HALOPERIDOL
     Indication: Agitation
     Route: 065
     Dates: end: 20220905

REACTIONS (6)
  - Dystonia [Not Recovered/Not Resolved]
  - Parkinsonism [Not Recovered/Not Resolved]
  - Drooling [Not Recovered/Not Resolved]
  - Confusional state [Not Recovered/Not Resolved]
  - Sedation complication [Recovering/Resolving]
  - Medication error [Unknown]
